FAERS Safety Report 6196562-7 (Version None)
Quarter: 2009Q2

REPORT INFORMATION
  Report Type: 
  Country: None (occurrence: None)
  Receive Date: 20090520
  Receipt Date: 20090512
  Transmission Date: 20091009
  Serious: Yes (Hospitalization)
  Sender: FDA-Public Use
  Company Number: US-GILEAD-2009-0020540

PATIENT
  Sex: Female
  Weight: 46.308 kg

DRUGS (11)
  1. LETAIRIS [Suspect]
     Indication: PULMONARY ARTERIAL HYPERTENSION
     Route: 048
     Dates: start: 20070825
  2. REVATIO [Concomitant]
  3. FUROSEMIDE [Concomitant]
  4. LISINOPRIL [Concomitant]
  5. PROCRIT [Concomitant]
     Dates: start: 20050805
  6. LEVOTHYROXINE SODIUM [Concomitant]
  7. CYMBALTA [Concomitant]
  8. LYRICA [Concomitant]
  9. TRAZODONE HCL [Concomitant]
  10. NORCO [Concomitant]
  11. PREVACID [Concomitant]

REACTIONS (1)
  - ANAEMIA [None]
